APPROVED DRUG PRODUCT: FOSCARNET SODIUM
Active Ingredient: FOSCARNET SODIUM
Strength: 12GM/500ML (24MG/ML)
Dosage Form/Route: SOLUTION;INTRAVENOUS
Application: A077174 | Product #002
Applicant: HOSPIRA INC
Approved: May 31, 2005 | RLD: No | RS: No | Type: DISCN